FAERS Safety Report 20346307 (Version 1)
Quarter: 2022Q1

REPORT INFORMATION
  Report Type: Report from Study
  Country: ES (occurrence: ES)
  Receive Date: 20220118
  Receipt Date: 20220118
  Transmission Date: 20220424
  Serious: Yes (Hospitalization, Other)
  Sender: FDA-Public Use
  Company Number: ES-SA-SAC20220103000183

PATIENT
  Age: 77 Year
  Sex: Male
  Weight: 64 kg

DRUGS (2)
  1. METFORMIN [Suspect]
     Active Substance: METFORMIN HYDROCHLORIDE
     Indication: Type 2 diabetes mellitus
     Dosage: UNK
     Route: 048
  2. INSULIN GLARGINE [Suspect]
     Active Substance: INSULIN GLARGINE
     Indication: Type 2 diabetes mellitus
     Dosage: 12 INTERNATIONAL UNIT, QD (12 IU, QD)
     Route: 058
     Dates: start: 2006

REACTIONS (5)
  - Coronary artery bypass [Recovered/Resolved]
  - Arterial revascularisation [Recovered/Resolved]
  - Diabetes mellitus inadequate control [Unknown]
  - Diarrhoea [Unknown]
  - Incorrect dose administered [Unknown]
